FAERS Safety Report 18906204 (Version 3)
Quarter: 2022Q1

REPORT INFORMATION
  Report Type: Spontaneous
  Country: US (occurrence: US)
  Receive Date: 20210217
  Receipt Date: 20220329
  Transmission Date: 20220423
  Serious: No
  Sender: FDA-Public Use
  Company Number: US-PFIZER INC-2021138423

PATIENT
  Age: 72 Year
  Sex: Female
  Weight: 53.515 kg

DRUGS (2)
  1. CHANTIX [Suspect]
     Active Substance: VARENICLINE TARTRATE
     Indication: Respiratory fume inhalation disorder
     Dosage: UNK
  2. CHANTIX [Suspect]
     Active Substance: VARENICLINE TARTRATE
     Dosage: TOOKING 1/2 EVERY 4 HOURS- EVERY 2 PER DAY
     Dates: start: 20210308

REACTIONS (3)
  - Frustration tolerance decreased [Unknown]
  - Mental disorder [Unknown]
  - Intentional product misuse [Recovered/Resolved]
